FAERS Safety Report 5119115-8 (Version None)
Quarter: 2006Q3

REPORT INFORMATION
  Report Type: 
  Country: None (occurrence: None)
  Receive Date: 20060925
  Receipt Date: 20060914
  Transmission Date: 20061208
  Serious: Yes (Hospitalization, Other)
  Sender: FDA-Public Use
  Company Number: CHWYE934715SEP06

PATIENT
  Age: 87 Year
  Sex: Male

DRUGS (6)
  1. EFFEXOR [Suspect]
     Indication: DEPRESSION
     Dosage: 75 MG 1X PER 1 DAY ORAL
     Route: 048
     Dates: start: 20000101, end: 20030101
  2. EFFEXOR [Suspect]
     Indication: DEPRESSION
     Dosage: 75 MG 1X PER 1 DAY ORAL
     Route: 048
     Dates: start: 20060907, end: 20060910
  3. ATENOLOL [Concomitant]
  4. ASPIRIN [Concomitant]
  5. CELLUVISC (CALCIUM CHLORIDE DIHYDRATE/CARMELLOSE/POTASSIUM CHLORIDE/SO [Concomitant]
  6. PRED FORTE [Concomitant]

REACTIONS (6)
  - APHASIA [None]
  - CONFUSIONAL STATE [None]
  - DISORIENTATION [None]
  - DYSPHASIA [None]
  - HALLUCINATION, VISUAL [None]
  - HYPONATRAEMIA [None]
